FAERS Safety Report 4622402-0 (Version None)
Quarter: 2005Q1

REPORT INFORMATION
  Report Type: 
  Country: None (occurrence: None)
  Receive Date: 20050325
  Receipt Date: 20050325
  Transmission Date: 20050727
  Serious: No
  Sender: FDA-Public Use
  Company Number: None

PATIENT
  Sex: Female
  Weight: 59.4212 kg

DRUGS (3)
  1. PROZAC [Suspect]
     Indication: DEPRESSION
     Dosage: FLUOXETINE
     Dates: start: 19950601, end: 19951101
  2. PROZAC [Suspect]
     Indication: DEPRESSION
     Dosage: FLUOXETINE
     Dates: start: 20020201, end: 20020301
  3. PROZAC [Suspect]
     Indication: DEPRESSION
     Dosage: FLUOXETINE
     Dates: start: 20020601, end: 20020701

REACTIONS (2)
  - PHARMACEUTICAL PRODUCT COMPLAINT [None]
  - THERAPEUTIC PRODUCT INEFFECTIVE [None]
